FAERS Safety Report 20427940 (Version 1)
Quarter: 2022Q1

REPORT INFORMATION
  Report Type: Spontaneous
  Country: RO (occurrence: RO)
  Receive Date: 20220204
  Receipt Date: 20220204
  Transmission Date: 20220424
  Serious: Yes (Death, Hospitalization, Other)
  Sender: FDA-Public Use
  Company Number: None

PATIENT
  Age: 73 Year
  Sex: Female

DRUGS (9)
  1. LINEZOLID [Suspect]
     Active Substance: LINEZOLID
     Indication: Enterococcal infection
     Dosage: 600 MILLIGRAM, BID
     Route: 065
     Dates: start: 2021, end: 2021
  2. LINEZOLID [Suspect]
     Active Substance: LINEZOLID
     Indication: Endocarditis enterococcal
  3. DEXAMETHASONE [Suspect]
     Active Substance: DEXAMETHASONE
     Indication: COVID-19 pneumonia
     Dosage: 8 MILLIGRAM, BID
     Route: 065
     Dates: start: 202105
  4. ENOXAPARIN [Suspect]
     Active Substance: ENOXAPARIN
     Indication: Prophylaxis
     Dosage: 4000 INTERNATIONAL UNIT, OD
     Route: 065
  5. MEROPENEM [Suspect]
     Active Substance: MEROPENEM
     Indication: Enterococcal infection
     Dosage: 1000 MILLIGRAM, TID
     Route: 065
     Dates: start: 2021
  6. MEROPENEM [Suspect]
     Active Substance: MEROPENEM
     Indication: Endocarditis enterococcal
  7. REMDESIVIR [Suspect]
     Active Substance: REMDESIVIR
     Indication: COVID-19 pneumonia
     Dosage: 100 MILLIGRAM, OD
     Route: 065
     Dates: start: 2021
  8. REMDESIVIR [Suspect]
     Active Substance: REMDESIVIR
     Dosage: 200 UNK
     Route: 065
     Dates: start: 202105
  9. TOCILIZUMAB [Suspect]
     Active Substance: TOCILIZUMAB
     Indication: COVID-19 pneumonia
     Dosage: 1600 MILLIGRAM, OD
     Route: 065
     Dates: start: 2021

REACTIONS (2)
  - Multiple organ dysfunction syndrome [Fatal]
  - Thrombocytopenia [Unknown]

NARRATIVE: CASE EVENT DATE: 20210101
